FAERS Safety Report 23145680 (Version 1)
Quarter: 2023Q4

REPORT INFORMATION
  Report Type: Spontaneous
  Country: US (occurrence: US)
  Receive Date: 20231103
  Receipt Date: 20231103
  Transmission Date: 20240109
  Serious: No
  Sender: FDA-Public Use
  Company Number: US-INSUD PHARMA-2310US07365

PATIENT

DRUGS (3)
  1. CLOBETASOL [Suspect]
     Active Substance: CLOBETASOL
     Indication: Psoriasis
     Dosage: 1/2 INCH AT MOST, 2 WEEKS ON AND 2 WEEKS OFF, THEN 2 WEEKS ON AGAIN IF NEEDED
     Route: 061
     Dates: start: 2022
  2. CHOLECALCIFEROL [Concomitant]
     Active Substance: CHOLECALCIFEROL
     Indication: Psoriasis
     Dosage: USED FOR 2 WEEKS ALTERNATING WITH CLOBETASOL
     Route: 061
     Dates: start: 20231022
  3. CHOLECALCIFEROL [Concomitant]
     Active Substance: CHOLECALCIFEROL
     Dosage: USED FOR 2 WEEKS ALTERNATING WITH CLOBETASOL
     Route: 061

REACTIONS (3)
  - Therapeutic product effect incomplete [Unknown]
  - Product use complaint [Unknown]
  - Product packaging quantity issue [Unknown]

NARRATIVE: CASE EVENT DATE: 20231022
